FAERS Safety Report 23357209 (Version 1)
Quarter: 2024Q1

REPORT INFORMATION
  Report Type: Spontaneous
  Country: None (occurrence: US)
  Receive Date: 20240102
  Receipt Date: 20240102
  Transmission Date: 20240410
  Serious: No
  Sender: FDA-Public Use
  Company Number: US-CSPC Ouyi Pharmaceutical Co., Ltd.-2150025

PATIENT
  Age: 49 Year

DRUGS (1)
  1. CARBAMAZEPINE [Suspect]
     Active Substance: CARBAMAZEPINE
     Indication: Epilepsy
     Dates: start: 20231019

REACTIONS (4)
  - Somnolence [None]
  - Fatigue [None]
  - Brain fog [None]
  - Mental impairment [None]

NARRATIVE: CASE EVENT DATE: 20231030
